FAERS Safety Report 13197401 (Version 1)
Quarter: 2017Q1

REPORT INFORMATION
  Report Type: Spontaneous
  Country: US (occurrence: US)
  Receive Date: 20170207
  Receipt Date: 20170207
  Transmission Date: 20170428
  Serious: No
  Sender: FDA-Public Use
  Company Number: None

PATIENT
  Age: 69 Year
  Sex: Female

DRUGS (4)
  1. SUTENT [Suspect]
     Active Substance: SUNITINIB MALATE
     Indication: TYPE 2 DIABETES MELLITUS
  2. SUTENT [Suspect]
     Active Substance: SUNITINIB MALATE
     Indication: ESSENTIAL HYPERTENSION
  3. SUTENT [Suspect]
     Active Substance: SUNITINIB MALATE
     Indication: RENAL CANCER
  4. SUTENT [Suspect]
     Active Substance: SUNITINIB MALATE
     Indication: TYPE IIA HYPERLIPIDAEMIA

REACTIONS (3)
  - Fatigue [None]
  - Diarrhoea [None]
  - Hypoglycaemia [None]

NARRATIVE: CASE EVENT DATE: 20170207
